FAERS Safety Report 4816628-0 (Version None)
Quarter: 2005Q4

REPORT INFORMATION
  Report Type: 
  Country: None (occurrence: None)
  Receive Date: 20051031
  Receipt Date: 20051031
  Transmission Date: 20060501
  Serious: Yes (Death, Hospitalization)
  Sender: FDA-Public Use
  Company Number: None

PATIENT
  Sex: Male
  Weight: 75 kg

DRUGS (5)
  1. PACLITAXEL [Suspect]
     Indication: NON-SMALL CELL LUNG CANCER
     Dosage: SEE IMAGE
     Dates: start: 20050802, end: 20050906
  2. PACLITAXEL [Suspect]
     Indication: NON-SMALL CELL LUNG CANCER
     Dosage: SEE IMAGE
     Dates: start: 20050906
  3. CARBOPLATIN [Suspect]
     Dosage: SEE IMAGE
     Dates: start: 20050802, end: 20050906
  4. CARBOPLATIN [Suspect]
     Dosage: SEE IMAGE
     Dates: start: 20050906
  5. RADIATION RT [Suspect]
     Dosage: SEE IMAGE
     Dates: start: 20050906

REACTIONS (9)
  - ASPIRATION TRACHEAL [None]
  - BARIUM SWALLOW ABNORMAL [None]
  - CHEST PAIN [None]
  - DISEASE PROGRESSION [None]
  - DYSPNOEA [None]
  - OXYGEN SATURATION DECREASED [None]
  - PNEUMONIA ASPIRATION [None]
  - VENTRICULAR TACHYCARDIA [None]
  - VOCAL CORD PARALYSIS [None]
